FAERS Safety Report 18717287 (Version 1)
Quarter: 2021Q1

REPORT INFORMATION
  Report Type: Spontaneous
  Country: ID (occurrence: ID)
  Receive Date: 20210108
  Receipt Date: 20210108
  Transmission Date: 20210419
  Serious: Yes (Death, Other)
  Sender: FDA-Public Use
  Company Number: ID-B.I. PHARMACEUTICALS,INC./RIDGEFIELD-2021-BI-073736

PATIENT
  Age: 6 Decade
  Sex: Male

DRUGS (1)
  1. OFEV [Suspect]
     Active Substance: NINTEDANIB
     Indication: COVID-19
     Dates: start: 20210102, end: 20210105

REACTIONS (3)
  - Off label use [Unknown]
  - Death [Fatal]
  - Lung disorder [Unknown]

NARRATIVE: CASE EVENT DATE: 20210105
